FAERS Safety Report 8519681-6 (Version None)
Quarter: 2012Q3

REPORT INFORMATION
  Report Type: 
  Country: None (occurrence: None)
  Receive Date: 20120719
  Receipt Date: 20120712
  Transmission Date: 20120928
  Serious: Yes (Disabling)
  Sender: FDA-Public Use
  Company Number: FR-AMGEN-FRASP2012044197

PATIENT
  Age: 63 Year
  Sex: Female

DRUGS (11)
  1. METHOTREXATE [Suspect]
     Indication: RHEUMATOID ARTHRITIS
     Dosage: 7.5 MG, WEEKLY
     Route: 048
     Dates: start: 19960205
  2. HUMIRA [Suspect]
     Indication: RHEUMATOID ARTHRITIS
     Dosage: UNK
     Route: 042
     Dates: start: 20081001, end: 20090301
  3. ORENCIA [Suspect]
     Indication: RHEUMATOID ARTHRITIS
     Dosage: UNK
     Route: 042
     Dates: start: 20110201
  4. PREDNISONE TAB [Suspect]
     Dosage: 8 MG, 1X/DAY
     Route: 048
     Dates: start: 19950220
  5. ENBREL [Suspect]
     Indication: RHEUMATOID ARTHRITIS
     Dosage: UNK
     Dates: start: 20080501, end: 20081001
  6. ACTONEL [Suspect]
     Indication: OSTEOPOROSIS
     Dosage: 35 MG, UNK
     Route: 048
     Dates: start: 20020604, end: 20100614
  7. PLAQUENIL [Suspect]
     Indication: RHEUMATOID ARTHRITIS
     Dosage: 400 MG, 1X/DAY
     Route: 048
     Dates: start: 19941201
  8. PREDNISONE TAB [Suspect]
     Indication: RHEUMATOID ARTHRITIS
     Dosage: 5 MG, 1X/DAY
     Route: 048
     Dates: start: 19950220
  9. CYTOTEC [Suspect]
     Dosage: UNK
     Route: 048
     Dates: start: 19981201
  10. PROTELOS [Suspect]
     Indication: OSTEOPOROSIS
     Dosage: UNK
     Route: 048
     Dates: start: 20110218, end: 20110913
  11. PENTASA [Suspect]
     Indication: RHEUMATOID ARTHRITIS
     Dosage: UNK
     Route: 048
     Dates: start: 19960101

REACTIONS (1)
  - BONE FISSURE [None]
